FAERS Safety Report 11747119 (Version 1)
Quarter: 2015Q4

REPORT INFORMATION
  Report Type: Spontaneous
  Country: CN (occurrence: CN)
  Receive Date: 20151117
  Receipt Date: 20151117
  Transmission Date: 20160304
  Serious: Yes (Other)
  Sender: FDA-Public Use
  Company Number: CN-ABBVIE-15P-035-1501923-00

PATIENT
  Age: 40 Year

DRUGS (2)
  1. DEPAKINE CHRONO [Suspect]
     Active Substance: VALPROATE SODIUM
     Dosage: EXTENDED RELEASE
     Route: 048
  2. DEPAKINE CHRONO [Suspect]
     Active Substance: VALPROATE SODIUM
     Indication: EPILEPSY
     Dosage: EXTENDED RELEASE
     Route: 048
     Dates: start: 201402

REACTIONS (4)
  - Epilepsy [Recovering/Resolving]
  - Coma [Unknown]
  - Wrong technique in product usage process [Unknown]
  - Abnormal precordial movement [Recovering/Resolving]
